FAERS Safety Report 8107437-8 (Version None)
Quarter: 2011Q4

REPORT INFORMATION
  Report Type: 
  Country: None (occurrence: None)
  Receive Date: 20111227
  Receipt Date: 20110919
  Transmission Date: 20120403
  Serious: Yes (Other)
  Sender: FDA-Public Use
  Company Number: PHEH2011US04557

PATIENT
  Age: 53 Year
  Sex: Female

DRUGS (5)
  1. AMANTADINE HCL [Concomitant]
  2. GILENYA [Suspect]
     Indication: MULTIPLE SCLEROSIS
     Dosage: 0.5 MG, QD, ORAL
     Route: 048
  3. CLARITIN [Concomitant]
  4. MULTIVITAMIN [Concomitant]
  5. LEXAPRO [Concomitant]

REACTIONS (1)
  - WHITE BLOOD CELL COUNT DECREASED [None]
